FAERS Safety Report 4360692-2 (Version None)
Quarter: 2004Q2

REPORT INFORMATION
  Report Type: 
  Country: None (occurrence: None)
  Receive Date: 20040514
  Receipt Date: 20040427
  Transmission Date: 20050107
  Serious: No
  Sender: FDA-Public Use
  Company Number: 701589

PATIENT
  Age: 73 Year
  Sex: Female

DRUGS (4)
  1. AMEVIVE [Suspect]
     Indication: PSORIASIS
     Dosage: 15 MG QW; IM
     Route: 030
     Dates: start: 20030703, end: 20030925
  2. AMEVIVE [Suspect]
     Indication: PSORIASIS
     Dosage: UNK
     Route: 065
     Dates: start: 20040312
  3. DOVONEX [Concomitant]
  4. TAZORAC [Concomitant]

REACTIONS (1)
  - PSORIASIS [None]
